FAERS Safety Report 8586159 (Version 4)
Quarter: 2014Q2

REPORT INFORMATION
  Report Type: Report from Study
  Country: US (occurrence: US)
  Receive Date: 20120530
  Receipt Date: 20140512
  Transmission Date: 20141212
  Serious: Yes (Other)
  Sender: FDA-Public Use
  Company Number: US-GLAXOSMITHKLINE-A0959701A

PATIENT
  Sex: Female

DRUGS (3)
  1. VENTOLIN HFA [Suspect]
     Indication: CHRONIC OBSTRUCTIVE PULMONARY DISEASE
     Dosage: 90MCG UNKNOWN
     Route: 065
  2. ADVAIR HFA [Suspect]
     Indication: CHRONIC OBSTRUCTIVE PULMONARY DISEASE
     Route: 055
  3. UNKNOWN MEDICATION [Suspect]
     Indication: PRODUCT USED FOR UNKNOWN INDICATION

REACTIONS (23)
  - Stent placement [Unknown]
  - Pain in extremity [Unknown]
  - Dyspnoea exertional [Unknown]
  - Joint swelling [Unknown]
  - Joint injury [Unknown]
  - Contusion [Unknown]
  - Arthralgia [Unknown]
  - Skin discolouration [Unknown]
  - Gout [Unknown]
  - Panic attack [Not Recovered/Not Resolved]
  - Dyspnoea [Unknown]
  - Feeling abnormal [Unknown]
  - Emotional distress [Unknown]
  - Fatigue [Unknown]
  - Chest discomfort [Unknown]
  - Drug ineffective for unapproved indication [Unknown]
  - Peripheral arterial occlusive disease [Unknown]
  - Spinal osteoarthritis [Unknown]
  - Aortic occlusion [Unknown]
  - Pain [Unknown]
  - Blood cholesterol abnormal [Unknown]
  - Fall [Unknown]
  - Neuropathy peripheral [Unknown]
